FAERS Safety Report 4272254-6 (Version None)
Quarter: 2004Q1

REPORT INFORMATION
  Report Type: 
  Country: None (occurrence: None)
  Receive Date: 20040114
  Receipt Date: 20040108
  Transmission Date: 20041129
  Serious: Yes (Life-Threatening, Hospitalization)
  Sender: FDA-Public Use
  Company Number: 2004193455GB

PATIENT
  Age: 6 Year
  Sex: Female
  Weight: 16 kg

DRUGS (1)
  1. GENOTROPIN [Suspect]
     Indication: TURNER'S SYNDROME
     Dosage: 5.6 MG, WEEKLY/INJEC WEEK
     Dates: start: 20010501

REACTIONS (4)
  - PYREXIA [None]
  - SPLENOMEGALY [None]
  - VIRAL INFECTION [None]
  - VOMITING [None]
